FAERS Safety Report 20381200 (Version 1)
Quarter: 2022Q1

REPORT INFORMATION
  Report Type: Spontaneous
  Country: US (occurrence: US)
  Receive Date: 20220127
  Receipt Date: 20220127
  Transmission Date: 20220423
  Serious: Yes (Other)
  Sender: FDA-Public Use
  Company Number: US-SAMSUNG BIOEPIS-SB-2022-01631

PATIENT
  Age: 16 Year
  Sex: Female

DRUGS (4)
  1. INFLIXIMAB [Suspect]
     Active Substance: INFLIXIMAB
     Indication: Crohn^s disease
     Dosage: UNKNOWN. INDUCTION AND MAINTENANCE THERAPY. DOSE WAS INCREASED
     Route: 065
  2. INFLIXIMAB [Suspect]
     Active Substance: INFLIXIMAB
     Indication: Colitis
  3. UCERIS [Concomitant]
     Active Substance: BUDESONIDE
     Indication: Crohn^s disease
     Dosage: UNKNOWN
     Route: 065
  4. UCERIS [Concomitant]
     Active Substance: BUDESONIDE
     Indication: Colitis

REACTIONS (5)
  - Colitis [Recovering/Resolving]
  - Colon dysplasia [Recovered/Resolved]
  - Drug ineffective for unapproved indication [Unknown]
  - Drug level below therapeutic [Unknown]
  - Off label use [Unknown]
